FAERS Safety Report 19177464 (Version 1)
Quarter: 2021Q2

REPORT INFORMATION
  Report Type: Spontaneous
  Country: US (occurrence: US)
  Receive Date: 20210425
  Receipt Date: 20210425
  Transmission Date: 20210717
  Serious: No
  Sender: FDA-Public Use
  Company Number: US-AMGEN-USASP2021060933

PATIENT
  Age: 74 Year
  Sex: Female
  Weight: 54.9 kg

DRUGS (2)
  1. MVASI [Suspect]
     Active Substance: BEVACIZUMAB-AWWB
     Dosage: 190 MILLIGRAM
     Route: 065
     Dates: start: 202102
  2. MVASI [Suspect]
     Active Substance: BEVACIZUMAB-AWWB
     Indication: BASAL CELL CARCINOMA
     Dosage: 190 MILLIGRAM
     Route: 065
     Dates: start: 20201110

REACTIONS (1)
  - Surgery [Unknown]

NARRATIVE: CASE EVENT DATE: 202104
